FAERS Safety Report 5041797-X (Version None)
Quarter: 2006Q2

REPORT INFORMATION
  Report Type: 
  Country: None (occurrence: None)
  Receive Date: 20060630
  Receipt Date: 20060622
  Transmission Date: 20061013
  Serious: Yes (Hospitalization, Other)
  Sender: FDA-Public Use
  Company Number: 200613675BWH

PATIENT
  Age: 72 Year
  Sex: Male

DRUGS (7)
  1. NEXAVAR [Suspect]
     Indication: RENAL CELL CARCINOMA STAGE UNSPECIFIED
     Dosage: ORAL
     Route: 048
     Dates: start: 20060301
  2. PERCOCET [Concomitant]
  3. FELODIPINE [Concomitant]
  4. LEVOTHYROXINE SODIUM [Concomitant]
  5. FLOMAX [Concomitant]
  6. TRIAMTERENE AND HYDROCHLOROTHIAZIDE [Concomitant]
  7. VITAMIN B-12 [Concomitant]

REACTIONS (2)
  - CORNEAL PERFORATION [None]
  - VITREOUS HAEMORRHAGE [None]
